FAERS Safety Report 20389163 (Version 6)
Quarter: 2022Q2

REPORT INFORMATION
  Report Type: Report from Study
  Country: US (occurrence: US)
  Receive Date: 20220128
  Receipt Date: 20220504
  Transmission Date: 20220720
  Serious: No
  Sender: FDA-Public Use
  Company Number: US-NOVARTISTESTPH-NVSC2022US016957

PATIENT
  Age: 60 Year
  Sex: Female

DRUGS (3)
  1. ENTRESTO [Suspect]
     Active Substance: SACUBITRIL\VALSARTAN
     Indication: Product used for unknown indication
     Dosage: 1 DOSAGE FORM, BID (49/51MG)
     Route: 048
     Dates: start: 202101
  2. ENTRESTO [Suspect]
     Active Substance: SACUBITRIL\VALSARTAN
     Dosage: UNK (TITRATED UP)
     Route: 065
  3. ENTRESTO [Suspect]
     Active Substance: SACUBITRIL\VALSARTAN
     Dosage: UNK (MIDDLE DOSE 6M)
     Route: 065

REACTIONS (7)
  - Glycosylated haemoglobin increased [Unknown]
  - Heart rate decreased [Unknown]
  - Weight decreased [Unknown]
  - Fatigue [Recovering/Resolving]
  - Nausea [Unknown]
  - Hypotension [Unknown]
  - Inappropriate schedule of product administration [Unknown]

NARRATIVE: CASE EVENT DATE: 20211001
